FAERS Safety Report 21931622 (Version 1)
Quarter: 2023Q1

REPORT INFORMATION
  Report Type: Spontaneous
  Country: FR (occurrence: FR)
  Receive Date: 20230131
  Receipt Date: 20230131
  Transmission Date: 20230418
  Serious: Yes (Other)
  Sender: FDA-Public Use
  Company Number: FR-MYLANLABS-2023M1009663

PATIENT
  Age: 64 Year
  Sex: Female

DRUGS (3)
  1. AZELASTINE [Suspect]
     Active Substance: AZELASTINE
     Indication: Sneezing
     Dosage: UNK (2 SPRAYS IN EACH NOSTRIL IN THE MORNING FOR 3 DAYS)START:19-JAN-2023
     Route: 065
     Dates: end: 20230128
  2. AZELASTINE [Suspect]
     Active Substance: AZELASTINE
     Indication: Rhinorrhoea
  3. AZELASTINE [Suspect]
     Active Substance: AZELASTINE
     Indication: Cough

REACTIONS (8)
  - Coma [Unknown]
  - Hypoaesthesia [Unknown]
  - Decreased appetite [Unknown]
  - Asthenia [Unknown]
  - Somnolence [Unknown]
  - Fatigue [Unknown]
  - Dizziness [Not Recovered/Not Resolved]
  - Nausea [Not Recovered/Not Resolved]

NARRATIVE: CASE EVENT DATE: 20230101
